FAERS Safety Report 4833042-2 (Version None)
Quarter: 2005Q4

REPORT INFORMATION
  Report Type: 
  Country: None (occurrence: None)
  Receive Date: 20051117
  Receipt Date: 20051103
  Transmission Date: 20060501
  Serious: Yes (Other)
  Sender: FDA-Public Use
  Company Number: US_0511123618

PATIENT
  Sex: Female

DRUGS (1)
  1. STRATTERA [Suspect]
     Dosage: 60 MG
     Dates: start: 20030101, end: 20051001

REACTIONS (2)
  - ARRHYTHMIA [None]
  - TACHYCARDIA [None]
